FAERS Safety Report 9230827 (Version 1)
Quarter: 2013Q2

REPORT INFORMATION
  Report Type: Spontaneous
  Country: GB (occurrence: None)
  Receive Date: 20130411
  Receipt Date: 20130411
  Transmission Date: 20140414
  Serious: Yes (Other)
  Sender: FDA-Public Use
  Company Number: AUR-APL-2013-02936

PATIENT
  Sex: Female

DRUGS (5)
  1. FLUOXETINE (FLUOXETINE) [Suspect]
     Indication: DEPRESSED MOOD
     Route: 064
     Dates: start: 20111114, end: 20111128
  2. CO-CODAMOL (PANADEINE CO) [Suspect]
     Indication: ROAD TRAFFIC ACCIDENT
     Dates: start: 20111114, end: 20111130
  3. FOLIC ACID [Suspect]
     Indication: PREGNANCY
     Route: 064
     Dates: start: 20110801
  4. M-M-RVAXPRO (MEASLES, MUMPS AND RUBELLA VACCINE) [Suspect]
     Indication: IMMUNISATION
     Route: 064
     Dates: start: 20110707, end: 20110707
  5. PHENOXYMETHYLPENICILLIN [Suspect]
     Indication: OROPHARYNGEAL PAIN
     Dosage: 500 MG 4 IN 1 DAY.
     Route: 064
     Dates: start: 20120102, end: 20120109

REACTIONS (1)
  - Gastroenteritis viral [None]
